FAERS Safety Report 10919327 (Version 1)
Quarter: 2015Q1

REPORT INFORMATION
  Report Type: Spontaneous
  Country: FR (occurrence: FR)
  Receive Date: 20150316
  Receipt Date: 20150316
  Transmission Date: 20150721
  Serious: Yes (Death)
  Sender: FDA-Public Use
  Company Number: FR-INTERMUNE, INC.-201402IM005105

PATIENT
  Age: 72 Year
  Sex: Male

DRUGS (6)
  1. PREDNISOLONE. [Concomitant]
     Active Substance: PREDNISOLONE
  2. ESBRIET [Suspect]
     Active Substance: PIRFENIDONE
     Indication: IDIOPATHIC PULMONARY FIBROSIS
     Route: 048
     Dates: start: 20140130
  3. INSULIN [Concomitant]
     Active Substance: INSULIN NOS
  4. ESBRIET [Suspect]
     Active Substance: PIRFENIDONE
     Dosage: 1602 MG
     Route: 048
  5. ESBRIET [Suspect]
     Active Substance: PIRFENIDONE
     Dosage: 2403 MG
     Route: 048
     Dates: start: 20140214, end: 201408
  6. CANDESARTAN [Concomitant]
     Active Substance: CANDESARTAN
     Indication: HYPERTENSION

REACTIONS (2)
  - Hypoglycaemia [Recovered/Resolved]
  - Idiopathic pulmonary fibrosis [Fatal]

NARRATIVE: CASE EVENT DATE: 20140208
